FAERS Safety Report 9170473 (Version 1)
Quarter: 2013Q1

REPORT INFORMATION
  Report Type: Spontaneous
  Country: US (occurrence: None)
  Receive Date: 20130307
  Receipt Date: 20130307
  Transmission Date: 20140127
  Serious: Yes (Hospitalization)
  Sender: FDA-Public Use
  Company Number: CIO13011513

PATIENT
  Sex: Male

DRUGS (1)
  1. PEPTO-BISMOL [Suspect]
     Indication: DYSPEPSIA
     Route: 048
     Dates: start: 20130224, end: 20130224

REACTIONS (2)
  - Abdominal pain upper [None]
  - Product colour issue [None]
